FAERS Safety Report 20198931 (Version 1)
Quarter: 2021Q4

REPORT INFORMATION
  Report Type: Report from Study
  Country: CA (occurrence: CA)
  Receive Date: 20211217
  Receipt Date: 20211217
  Transmission Date: 20220303
  Serious: Yes (Other)
  Sender: FDA-Public Use
  Company Number: CA-TAKEDA-2021TUS079107

PATIENT
  Age: 44 Year
  Sex: Female

DRUGS (3)
  1. VEDOLIZUMAB [Suspect]
     Active Substance: VEDOLIZUMAB
     Indication: Colitis ulcerative
     Dosage: 300 MILLIGRAM
     Route: 042
     Dates: start: 20210803
  2. INFLECTRA [Concomitant]
     Active Substance: INFLIXIMAB-DYYB
     Dosage: UNK
     Dates: start: 201805
  3. PREDNISONE [Concomitant]
     Active Substance: PREDNISONE
     Dosage: 20 MILLIGRAM
     Dates: start: 20210716

REACTIONS (5)
  - Haematochezia [Unknown]
  - Defaecation urgency [Unknown]
  - Frequent bowel movements [Unknown]
  - Mucous stools [Unknown]
  - Rectal tenesmus [Unknown]
